FAERS Safety Report 7808409-0 (Version None)
Quarter: 2011Q4

REPORT INFORMATION
  Report Type: 
  Country: None (occurrence: None)
  Receive Date: 20111007
  Receipt Date: 20110928
  Transmission Date: 20120403
  Serious: Yes (Hospitalization)
  Sender: FDA-Public Use
  Company Number: CIP11002464

PATIENT
  Age: 68 Year
  Sex: Female

DRUGS (14)
  1. LOXONIN (LOXOPROFEN SODIUM) [Concomitant]
  2. ETODOLAC [Concomitant]
  3. MAGMITT (MAGNESIUM OXIDE) [Concomitant]
  4. TAKEPRON (LANSOPRAZOLE) [Concomitant]
  5. GASLON (IRSOGLADINE MALEATE) [Concomitant]
  6. CINAL (ASCORBIC ACID, CALCIUM PANTOTHENATE) [Concomitant]
  7. MARZULENE-S (AZULENE, LEVOGLUTAMIDE, SODIUM GUALENATE) [Concomitant]
  8. ARTZ/ARTZ DISPO (HYALURONATE SODIUM) [Concomitant]
  9. RISEDRONATE SODIUM [Suspect]
     Indication: OSTEOPOROSIS
     Dosage: 17.5 MG ONCE WEEKLY, ORAL
     Route: 048
     Dates: start: 20091112, end: 20110913
  10. INDOMETACIN [Concomitant]
  11. SALAGEN [Concomitant]
  12. AZUNOL (SODIUM GUALENATE) [Concomitant]
  13. ALL OTHER THERAPEUTIC PRODUCTS [Concomitant]
  14. BISULASE (ROBOFLAVIN) [Concomitant]

REACTIONS (1)
  - KNEE OPERATION [None]
